FAERS Safety Report 13779297 (Version 2)
Quarter: 2017Q4

REPORT INFORMATION
  Report Type: Spontaneous
  Country: None (occurrence: US)
  Receive Date: 20170721
  Receipt Date: 20171016
  Transmission Date: 20180320
  Serious: Yes (Hospitalization, Other)
  Sender: FDA-Public Use
  Company Number: US-AMPHASTAR PHARMACEUTICALS, INC.-2023603

PATIENT
  Age: 65 Year
  Sex: Male
  Weight: 80.46 kg

DRUGS (3)
  1. SYNTHROID [Concomitant]
     Active Substance: LEVOTHYROXINE SODIUM
  2. ENOXAPARIN SODIUM. [Suspect]
     Active Substance: ENOXAPARIN SODIUM
     Indication: ANTICONVULSANT DRUG LEVEL
     Route: 058
     Dates: start: 20170212
  3. AVODART [Concomitant]
     Active Substance: DUTASTERIDE

REACTIONS (2)
  - Heparin-induced thrombocytopenia [Unknown]
  - Skin necrosis [Recovering/Resolving]

NARRATIVE: CASE EVENT DATE: 20170215
